FAERS Safety Report 15602896 (Version 2)
Quarter: 2020Q1

REPORT INFORMATION
  Report Type: Spontaneous
  Country: US (occurrence: US)
  Receive Date: 20181109
  Receipt Date: 20200205
  Transmission Date: 20200409
  Serious: Yes (Other)
  Sender: FDA-Public Use
  Company Number: US-AMGEN-USASP2018102437

PATIENT
  Age: 54 Year
  Sex: Female

DRUGS (8)
  1. XGEVA [Suspect]
     Active Substance: DENOSUMAB
     Indication: HYPERCALCAEMIA
     Dosage: 120 MILLIGRAM
     Route: 065
  2. VINCRISTINE [Concomitant]
     Active Substance: VINCRISTINE
  3. CYTARABINE. [Concomitant]
     Active Substance: CYTARABINE
  4. DOXORUBICIN [Concomitant]
     Active Substance: DOXORUBICIN
  5. CYCLOPHOSPHAMIDE. [Concomitant]
     Active Substance: CYCLOPHOSPHAMIDE
  6. ETOPOSIDE. [Concomitant]
     Active Substance: ETOPOSIDE
  7. METHYLPREDNISOLONE. [Concomitant]
     Active Substance: METHYLPREDNISOLONE
  8. CISPLATIN. [Concomitant]
     Active Substance: CISPLATIN

REACTIONS (8)
  - Hyperparathyroidism secondary [Unknown]
  - Blood phosphorus decreased [Unknown]
  - Blood albumin decreased [Unknown]
  - Blood alkaline phosphatase decreased [Unknown]
  - Blood 1,25-dihydroxycholecalciferol increased [Unknown]
  - Blood magnesium decreased [Unknown]
  - Hypocalcaemia [Recovered/Resolved]
  - Blood lactate dehydrogenase increased [Unknown]
